FAERS Safety Report 21524410 (Version 6)
Quarter: 2022Q4

REPORT INFORMATION
  Report Type: Report from Study
  Country: US (occurrence: US)
  Receive Date: 20221029
  Receipt Date: 20221118
  Transmission Date: 20230112
  Serious: No
  Sender: FDA-Public Use
  Company Number: US-NOVARTISTESTPH-NVSC2022US242070

PATIENT
  Age: 36 Year
  Sex: Female

DRUGS (2)
  1. GILENYA [Suspect]
     Active Substance: FINGOLIMOD HYDROCHLORIDE
     Indication: Multiple sclerosis
     Dosage: 0.5 MG, QD
     Route: 048
     Dates: start: 20221016
  2. GILENYA [Suspect]
     Active Substance: FINGOLIMOD HYDROCHLORIDE
     Indication: Multiple sclerosis relapse
     Dosage: 0.5 MG, QD
     Route: 048

REACTIONS (10)
  - Neck pain [Unknown]
  - Hypoaesthesia oral [Unknown]
  - Swelling [Unknown]
  - Muscle spasms [Unknown]
  - Heavy menstrual bleeding [Unknown]
  - Nervousness [Unknown]
  - Product availability issue [Unknown]
  - Dizziness [Unknown]
  - Back pain [Unknown]
  - Panic disorder [Unknown]

NARRATIVE: CASE EVENT DATE: 20221025
